FAERS Safety Report 4763015-X (Version None)
Quarter: 2005Q3

REPORT INFORMATION
  Report Type: 
  Country: None (occurrence: None)
  Receive Date: 20050907
  Receipt Date: 20050513
  Transmission Date: 20060218
  Serious: Yes (Hospitalization, Disabling)
  Sender: FDA-Public Use
  Company Number: US-MERCK-0505USA01950

PATIENT
  Age: 34 Year
  Sex: Male
  Weight: 83 kg

DRUGS (3)
  1. VIOXX [Suspect]
     Indication: BONE PAIN
     Route: 048
     Dates: start: 20031101, end: 20040301
  2. VIOXX [Suspect]
     Indication: LUMBAR HERNIA
     Route: 048
     Dates: start: 20031101, end: 20040301
  3. SYNTHROID [Concomitant]
     Indication: HYPOTHYROIDISM
     Route: 065

REACTIONS (11)
  - ACUTE MYOCARDIAL INFARCTION [None]
  - ANGINA UNSTABLE [None]
  - BACK INJURY [None]
  - CORONARY ARTERY DISEASE [None]
  - FALL [None]
  - GASTRITIS [None]
  - HYPERCHOLESTEROLAEMIA [None]
  - HYPERTENSION [None]
  - PRESCRIBED OVERDOSE [None]
  - SPINAL DISORDER [None]
  - WRIST FRACTURE [None]
